FAERS Safety Report 17533311 (Version 6)
Quarter: 2021Q2

REPORT INFORMATION
  Report Type: Report from Study
  Country: ES (occurrence: ES)
  Receive Date: 20200312
  Receipt Date: 20210510
  Transmission Date: 20210716
  Serious: Yes (Death, Hospitalization, Other)
  Sender: FDA-Public Use
  Company Number: ES-JNJFOC-20200307088

PATIENT
  Age: 82 Year
  Sex: Female

DRUGS (12)
  1. SPIRONOLACTONE. [Concomitant]
     Active Substance: SPIRONOLACTONE
     Dosage: 25 MG
  2. TRAMADOL/PARACETAMOL [Concomitant]
     Active Substance: ACETAMINOPHEN\TRAMADOL
     Dosage: 112.5/975 MG
  3. RIVAROXABAN [Suspect]
     Active Substance: RIVAROXABAN
     Indication: CEREBROVASCULAR ACCIDENT PROPHYLAXIS
     Dosage: 15 MG, QD
     Route: 048
     Dates: start: 20180522
  4. ATORVASTATIN [Concomitant]
     Active Substance: ATORVASTATIN
     Dosage: 80 MG
  5. LATANOPROST. [Concomitant]
     Active Substance: LATANOPROST
     Dosage: 10 MG
  6. RIVAROXABAN [Suspect]
     Active Substance: RIVAROXABAN
     Indication: ATRIAL FIBRILLATION
  7. DIGOXIN. [Suspect]
     Active Substance: DIGOXIN
     Indication: PRODUCT USED FOR UNKNOWN INDICATION
     Dosage: UNK
     Route: 065
     Dates: start: 2018, end: 20190128
  8. CROMATONBIC B12 [Concomitant]
     Dosage: 66.6 MG
  9. FUROSEMIDE. [Concomitant]
     Active Substance: FUROSEMIDE
     Dosage: 40 MG
  10. SACUBITRIL VALSARTAN SODIUM HYDRATE [Concomitant]
     Active Substance: SACUBITRIL\VALSARTAN
     Dosage: 98/102 MG
  11. OMEPRAZOLE. [Concomitant]
     Active Substance: OMEPRAZOLE
     Dosage: 20 MG
  12. LORMETAZEPAM [Concomitant]
     Active Substance: LORMETAZEPAM
     Dosage: 1 MG

REACTIONS (6)
  - Toxicity to various agents [Recovering/Resolving]
  - Hyperkalaemia [Recovered/Resolved]
  - Dementia [Recovered/Resolved]
  - Acute kidney injury [Recovered/Resolved]
  - Cardiogenic shock [Fatal]
  - Renal failure [Recovered/Resolved]

NARRATIVE: CASE EVENT DATE: 20190128
